FAERS Safety Report 9638004 (Version 1)
Quarter: 2013Q4

REPORT INFORMATION
  Report Type: Spontaneous
  Country: FR (occurrence: FR)
  Receive Date: 20131022
  Receipt Date: 20131022
  Transmission Date: 20140711
  Serious: Yes (Hospitalization)
  Sender: FDA-Public Use
  Company Number: PHHY2013FR117812

PATIENT
  Age: 51 Year
  Sex: Female

DRUGS (4)
  1. LEPONEX / CLOZARIL (CLOZAPINE) [Suspect]
     Dosage: UNK
     Route: 048
     Dates: end: 20130724
  2. LEPONEX / CLOZARIL (CLOZAPINE) [Suspect]
     Dosage: 100 MG, BID
     Route: 048
  3. AKINETON//BIPERIDEN [Suspect]
     Dosage: UNK
     Route: 048
     Dates: end: 20130724
  4. ATARAX//HYDROXYZINE [Suspect]
     Dosage: UNK
     Route: 048

REACTIONS (3)
  - Heat stroke [Recovered/Resolved]
  - Rhabdomyolysis [Recovered/Resolved]
  - Thrombocytopenia [Recovered/Resolved]
